FAERS Safety Report 7394178-8 (Version None)
Quarter: 2011Q2

REPORT INFORMATION
  Report Type: 
  Country: None (occurrence: None)
  Receive Date: 20110405
  Receipt Date: 20110325
  Transmission Date: 20111010
  Serious: Yes (Other)
  Sender: FDA-Public Use
  Company Number: US-ELI_LILLY_AND_COMPANY-US200709003777

PATIENT
  Sex: Female

DRUGS (4)
  1. HUMALOG MIX 50/50 [Suspect]
     Indication: DIABETES MELLITUS
     Dates: start: 20050101
  2. HUMALOG MIX 50/50 [Suspect]
     Dosage: UNK, QID
     Route: 065
  3. CARTIA XT [Concomitant]
     Dosage: 180 MG, UNK
  4. HYZAAR [Concomitant]
     Indication: BLOOD PRESSURE

REACTIONS (3)
  - VISION BLURRED [None]
  - MACULAR DEGENERATION [None]
  - VISUAL ACUITY REDUCED [None]
